FAERS Safety Report 4678749-5 (Version None)
Quarter: 2005Q2

REPORT INFORMATION
  Report Type: 
  Country: None (occurrence: None)
  Receive Date: 20050531
  Receipt Date: 20050517
  Transmission Date: 20051028
  Serious: Yes (Other)
  Sender: FDA-Public Use
  Company Number: 2005-128303-NL

PATIENT
  Age: 53 Year
  Sex: Female
  Weight: 56.2 kg

DRUGS (9)
  1. REMERON [Suspect]
     Indication: DEPRESSION
     Dosage: 15 MG QD ORAL, AT BEDTIME
     Route: 048
     Dates: start: 20041231, end: 20050418
  2. REMERON [Suspect]
     Indication: DEPRESSION
     Dosage: 11.25 MG QD ORAL, AT BEDTIME
     Route: 048
     Dates: start: 20050418, end: 20050401
  3. MIRTAZAPINE [Suspect]
     Indication: DEPRESSION
     Dosage: 11.25 MG QD ORAL, AT BEDTIME
     Route: 048
     Dates: start: 20050401, end: 20050505
  4. MIRTAZAPINE [Suspect]
     Indication: DEPRESSION
     Dosage: 7.5 MG QD ORAL, AT BEDTIME
     Route: 048
     Dates: start: 20050505, end: 20050513
  5. MIRTAZAPINE [Suspect]
     Indication: DEPRESSION
     Dosage: 3.75 MG QD ORAL, AT BEDTIME
     Route: 048
     Dates: start: 20050505, end: 20050513
  6. CALCIUM CARBONATE / VITAMIN D [Concomitant]
  7. ABREVA [Concomitant]
  8. CENTRUM [Concomitant]
  9. ASCORBIC ACID [Concomitant]

REACTIONS (5)
  - HEART RATE INCREASED [None]
  - HYPERTHYROIDISM [None]
  - LIVER FUNCTION TEST ABNORMAL [None]
  - OEDEMA PERIPHERAL [None]
  - WEIGHT INCREASED [None]
